FAERS Safety Report 12861577 (Version 2)
Quarter: 2016Q4

REPORT INFORMATION
  Report Type: Spontaneous
  Country: US (occurrence: US)
  Receive Date: 20161019
  Receipt Date: 20161129
  Transmission Date: 20170207
  Serious: No
  Sender: FDA-Public Use
  Company Number: US-PFIZER INC-2016484659

PATIENT
  Age: 87 Year
  Sex: Male
  Weight: 61 kg

DRUGS (6)
  1. ALEVE [Suspect]
     Active Substance: NAPROXEN SODIUM
     Indication: ARTHRALGIA
     Dosage: 220 MG, 2X/DAY (TWO IN THE MORNING AND TWO IN THE EVENING)
     Dates: start: 20161001
  2. ALEVE [Suspect]
     Active Substance: NAPROXEN SODIUM
     Indication: SCIATICA
  3. ADVIL [Suspect]
     Active Substance: IBUPROFEN
     Indication: ARTHRALGIA
     Dosage: 400 MG, 2X/DAY (TWO IN THE MORNING AND TWO IN THE EVENING)
     Route: 048
     Dates: start: 20161001
  4. ADVIL [Suspect]
     Active Substance: IBUPROFEN
     Indication: SCIATICA
  5. ADVIL [Suspect]
     Active Substance: IBUPROFEN
     Indication: ARTHRITIS
     Dosage: 1000 MG, DAILY (200MG TABLETS BY MOUTH, 2 IN THE MORNING, 1 AT NOON, AND 2 AT NIGHT)
     Route: 048
     Dates: start: 201609, end: 2016
  6. TYLENOL 8 HR [Suspect]
     Active Substance: ACETAMINOPHEN
     Indication: ARTHRALGIA
     Dosage: 650 MG, UNK
     Dates: start: 20161001

REACTIONS (2)
  - Drug ineffective [Not Recovered/Not Resolved]
  - Gait disturbance [Unknown]

NARRATIVE: CASE EVENT DATE: 2016
